FAERS Safety Report 8093016-8 (Version None)
Quarter: 2012Q1

REPORT INFORMATION
  Report Type: 
  Country: None (occurrence: None)
  Receive Date: 20120128
  Receipt Date: 20111018
  Transmission Date: 20120608
  Serious: Yes (Hospitalization)
  Sender: FDA-Public Use
  Company Number: US-ABBOTT-10P-163-0638031-00

PATIENT
  Sex: Male
  Weight: 71.278 kg

DRUGS (8)
  1. DOXYCYLINE HYCLATE [Concomitant]
     Indication: ACNE
  2. PROTONIX [Concomitant]
     Indication: DYSPEPSIA
  3. HUMIRA [Suspect]
     Indication: CROHN'S DISEASE
     Dates: start: 20091201
  4. CALCIUM [Concomitant]
     Indication: PRODUCT USED FOR UNKNOWN INDICATION
  5. FOLIC ACID [Concomitant]
     Indication: PRODUCT USED FOR UNKNOWN INDICATION
  6. HUMIRA [Suspect]
     Dosage: HUMIRA PEN
     Dates: start: 20091201
  7. DRISDOL [Concomitant]
     Indication: PRODUCT USED FOR UNKNOWN INDICATION
  8. FERROUS SULFATE TAB [Concomitant]
     Indication: PRODUCT USED FOR UNKNOWN INDICATION

REACTIONS (1)
  - ABSCESS INTESTINAL [None]
